FAERS Safety Report 7533753 (Version 9)
Quarter: 2019Q4

REPORT INFORMATION
  Report Type: Spontaneous
  Country: US (occurrence: US)
  Receive Date: 20100809
  Receipt Date: 20191015
  Transmission Date: 20200122
  Serious: Yes (Life-Threatening, Hospitalization, Disabling, Other)
  Sender: FDA-Public Use
  Company Number: US-PFIZER INC-2005072011

PATIENT
  Age: 53 Year
  Sex: Female
  Weight: 54 kg

DRUGS (8)
  1. GEODON [Suspect]
     Active Substance: ZIPRASIDONE HYDROCHLORIDE\ZIPRASIDONE MESYLATE
     Indication: HALLUCINATION
     Dosage: 20 MG, UNK
     Dates: start: 20011121
  2. SYNTHROID [Concomitant]
     Active Substance: LEVOTHYROXINE SODIUM
     Dosage: UNK, DAILY
     Route: 048
  3. CELEXA [Concomitant]
     Active Substance: CITALOPRAM HYDROBROMIDE
     Dosage: UNK
     Route: 048
  4. GEODON [Suspect]
     Active Substance: ZIPRASIDONE HYDROCHLORIDE\ZIPRASIDONE MESYLATE
     Indication: BIPOLAR DISORDER
     Dosage: UNK
     Route: 048
     Dates: start: 20011021, end: 20011220
  5. ZYPREXA [Suspect]
     Active Substance: OLANZAPINE
     Dosage: 10 MG, AT NIGHT
     Dates: start: 19980911
  6. DEPAKOTE [Concomitant]
     Active Substance: DIVALPROEX SODIUM
     Dosage: 500 MG PM, 250 MG AM
     Route: 048
  7. DEPAKOTE [Concomitant]
     Active Substance: DIVALPROEX SODIUM
     Dosage: 50 MG, 1X/DAY AT BEDTIME
  8. COGENTIN [Concomitant]
     Active Substance: BENZTROPINE MESYLATE
     Dosage: 2 MG, 1X/DAY

REACTIONS (41)
  - Sinus bradycardia [Recovered/Resolved]
  - Cognitive disorder [Not Recovered/Not Resolved]
  - Nightmare [Unknown]
  - Headache [Unknown]
  - Hypertension [Unknown]
  - Hypoxic-ischaemic encephalopathy [Not Recovered/Not Resolved]
  - Rhabdomyolysis [Recovered/Resolved]
  - Arrhythmia [Unknown]
  - Pneumonia [Recovered/Resolved]
  - Bradyphrenia [Not Recovered/Not Resolved]
  - Weight increased [Not Recovered/Not Resolved]
  - Nervousness [Unknown]
  - Loss of consciousness [Recovered/Resolved]
  - Myoglobin blood increased [Unknown]
  - Staring [Unknown]
  - Cardiac arrest [Recovered/Resolved]
  - Acidosis [Recovered/Resolved]
  - Long QT syndrome [Recovered/Resolved]
  - Tracheostomy [Unknown]
  - Disability [Unknown]
  - Hypoxia [Recovered/Resolved]
  - Blood creatine phosphokinase MB increased [Unknown]
  - Memory impairment [Unknown]
  - Drug level increased [Unknown]
  - Flat affect [Unknown]
  - Lack of spontaneous speech [Unknown]
  - Gastroenteritis [Unknown]
  - Seizure [Unknown]
  - Haemoptysis [Unknown]
  - Hyperlipidaemia [Unknown]
  - Brain injury [Not Recovered/Not Resolved]
  - Staphylococcal bacteraemia [Recovered/Resolved]
  - Dysphagia [Unknown]
  - Rash [Unknown]
  - Respiratory arrest [Recovered/Resolved]
  - Coma [Recovered/Resolved]
  - Blood creatine phosphokinase increased [Unknown]
  - Feeling abnormal [Unknown]
  - Speech disorder [Unknown]
  - Restless legs syndrome [Unknown]
  - Upper respiratory tract infection [Recovering/Resolving]

NARRATIVE: CASE EVENT DATE: 20011026
